FAERS Safety Report 14800587 (Version 2)
Quarter: 2018Q3

REPORT INFORMATION
  Report Type: Spontaneous
  Country: GB (occurrence: GB)
  Receive Date: 20180424
  Receipt Date: 20180903
  Transmission Date: 20181010
  Serious: Yes (Disabling)
  Sender: FDA-Public Use
  Company Number: PHHY2018GB071439

PATIENT
  Age: 39 Year
  Sex: Female
  Weight: 70.4 kg

DRUGS (1)
  1. COSENTYX [Suspect]
     Active Substance: SECUKINUMAB
     Indication: PSORIASIS
     Dosage: 300 MG, UNK
     Route: 058

REACTIONS (6)
  - Vision blurred [Unknown]
  - Eye pain [Unknown]
  - Sjogren^s syndrome [Not Recovered/Not Resolved]
  - Dry mouth [Unknown]
  - Photophobia [Unknown]
  - Dry eye [Unknown]

NARRATIVE: CASE EVENT DATE: 201709
